FAERS Safety Report 23567561 (Version 1)
Quarter: 2024Q1

REPORT INFORMATION
  Report Type: Spontaneous
  Country: CN (occurrence: CN)
  Receive Date: 20240226
  Receipt Date: 20240226
  Transmission Date: 20240409
  Serious: Yes (Hospitalization)
  Sender: FDA-Public Use
  Company Number: CN-ORGANON-O2402CHN001937

PATIENT
  Age: 17 Year
  Sex: Female
  Weight: 48 kg

DRUGS (3)
  1. SINGULAIR [Suspect]
     Active Substance: MONTELUKAST SODIUM
     Indication: Pneumonia
     Dosage: 10 MG, QD, PO
     Route: 048
     Dates: start: 20240204, end: 20240209
  2. DOXYCYCLINE HYCLATE [Suspect]
     Active Substance: DOXYCYCLINE HYCLATE
     Indication: Pneumonia
     Dosage: 0.1 G EVERY 12 HOURS WITH IV DRIP
     Route: 041
     Dates: start: 20240204, end: 20240208
  3. PIPERACILLIN SODIUM AND TAZOBACTAM SODIUM (4:1) FOR INJECTION [Concomitant]
     Indication: Pneumonia
     Dosage: 4.5 GRAM, TID
     Route: 041
     Dates: start: 20240204, end: 20240214

REACTIONS (1)
  - Hepatic enzyme increased [Recovered/Resolved]

NARRATIVE: CASE EVENT DATE: 20240205
